FAERS Safety Report 15323003 (Version 1)
Quarter: 2018Q3

REPORT INFORMATION
  Report Type: Spontaneous
  Country: US (occurrence: US)
  Receive Date: 20180822
  Receipt Date: 20180822
  Transmission Date: 20181010
  Serious: Yes (Other)
  Sender: FDA-Public Use
  Company Number: None

PATIENT
  Age: 80 Year
  Sex: Female
  Weight: 68.53 kg

DRUGS (12)
  1. ZOCOR [Concomitant]
     Active Substance: SIMVASTATIN
  2. FISH OIL [Concomitant]
     Active Substance: FISH OIL
  3. HEXALEN [Suspect]
     Active Substance: ALTRETAMINE
     Indication: OVARIAN CANCER
     Route: 048
     Dates: start: 20180309
  4. XANAX [Concomitant]
     Active Substance: ALPRAZOLAM
  5. SYMBICORT [Concomitant]
     Active Substance: BUDESONIDE\FORMOTEROL FUMARATE DIHYDRATE
  6. VITAMIN B12 [Concomitant]
     Active Substance: CYANOCOBALAMIN
  7. VITAMIN B6 [Concomitant]
     Active Substance: PYRIDOXINE HYDROCHLORIDE
  8. DILTIAZEM ER [Concomitant]
     Active Substance: DILTIAZEM
  9. COQ10 [Concomitant]
     Active Substance: UBIDECARENONE
  10. VITAMIN D [Concomitant]
     Active Substance: CHOLECALCIFEROL
  11. COLACE [Concomitant]
     Active Substance: DOCUSATE SODIUM
  12. PRESERVISION AREDS 2 [Concomitant]
     Active Substance: MINERALS\VITAMINS

REACTIONS (4)
  - Nausea [None]
  - Dyspnoea [None]
  - Contusion [None]
  - Fatigue [None]

NARRATIVE: CASE EVENT DATE: 20180821
